FAERS Safety Report 8007658-9 (Version None)
Quarter: 2011Q4

REPORT INFORMATION
  Report Type: 
  Country: None (occurrence: None)
  Receive Date: 20111222
  Receipt Date: 20111222
  Transmission Date: 20120403
  Serious: No
  Sender: FDA-Public Use
  Company Number: None

PATIENT
  Sex: Female
  Weight: 68.0396 kg

DRUGS (2)
  1. HYOSCYAMINE [Suspect]
     Indication: IRRITABLE BOWEL SYNDROME
     Dosage: 0.125MG SUB 2 X DAY
     Route: 058
     Dates: start: 20111109, end: 20111120
  2. HYOSCYAMINE [Suspect]
     Indication: GASTROINTESTINAL BACTERIAL INFECTION
     Dosage: 0.125MG SUB 2 X DAY
     Route: 058
     Dates: start: 20111109, end: 20111120

REACTIONS (4)
  - PYREXIA [None]
  - PAIN [None]
  - DIARRHOEA [None]
  - FUNGAL INFECTION [None]
